FAERS Safety Report 5222279-9 (Version None)
Quarter: 2007Q1

REPORT INFORMATION
  Report Type: 
  Country: None (occurrence: None)
  Receive Date: 20070124
  Receipt Date: 20070118
  Transmission Date: 20070707
  Serious: Yes (Hospitalization)
  Sender: FDA-Public Use
  Company Number: 2006-03107

PATIENT
  Age: 63 Year
  Sex: Male
  Weight: 104 kg

DRUGS (16)
  1. VELCADE [Suspect]
     Indication: MANTLE CELL LYMPHOMA
     Dosage: 1.30 MG, INTRAVENOUS
     Route: 042
     Dates: start: 20061018, end: 20061021
  2. CYCLOPHOSPHAMIDE [Suspect]
     Indication: MANTLE CELL LYMPHOMA
     Dosage: 690.00 MG, INTRAVENOUS
     Route: 042
     Dates: start: 20061018
  3. RITUXAN [Suspect]
     Indication: MANTLE CELL LYMPHOMA
     Dosage: 830.00 MG, INTRAVENOUS
     Route: 042
     Dates: start: 20061018, end: 20061018
  4. DOXORUBICIN HCL [Suspect]
     Indication: MANTLE CELL LYMPHOMA
     Dosage: 59.50 MG, INTRAVENOUS
     Route: 042
     Dates: start: 20061018, end: 20061019
  5. DEXAMETHASONE [Suspect]
     Indication: MANTLE CELL LYMPHOMA
     Dosage: 40.00 MG, ORAL
     Route: 048
     Dates: start: 20061018, end: 20061021
  6. VINCRISTINE [Suspect]
     Indication: MANTLE CELL LYMPHOMA
     Dosage: 1.00 MG, INTRAVENOUS
     Route: 042
     Dates: start: 20061018, end: 20061021
  7. NEULASTA [Concomitant]
  8. ACYCLOVIR [Concomitant]
  9. FLUCONAZOLE [Concomitant]
  10. LISINOPRIL [Concomitant]
  11. METOPROLOL TARTRATE [Concomitant]
  12. PANTOPRAZOLE SODIUM [Concomitant]
  13. LORAZEPAM [Concomitant]
  14. LOPERAMIDE HCL [Concomitant]
  15. COMPAZINE [Concomitant]
  16. TRIMETHOPRIM SULFATE (TRIMETHOPRIM SULFATE) [Concomitant]

REACTIONS (4)
  - DECUBITUS ULCER [None]
  - ERYTHEMA [None]
  - PANCYTOPENIA [None]
  - PYREXIA [None]
